FAERS Safety Report 20144260 (Version 1)
Quarter: 2021Q4

REPORT INFORMATION
  Report Type: Spontaneous
  Country: US (occurrence: US)
  Receive Date: 20211203
  Receipt Date: 20211203
  Transmission Date: 20220303
  Serious: No
  Sender: FDA-Public Use
  Company Number: US-009507513-2112USA000732

PATIENT
  Sex: Male

DRUGS (3)
  1. KEYTRUDA [Suspect]
     Active Substance: PEMBROLIZUMAB
     Indication: Peritoneal mesothelioma malignant
     Dosage: 200 MILLIGRAM, Q3W
  2. CISPLATIN [Concomitant]
     Active Substance: CISPLATIN
     Indication: Peritoneal mesothelioma malignant
     Dosage: 75 MILLIGRAM/SQ. METER, Q3WFOR 4 CYCLES
  3. PEMETREXED [Concomitant]
     Active Substance: PEMETREXED
     Indication: Peritoneal mesothelioma malignant
     Dosage: 500 MILLIGRAM/SQ. METER, Q3WFOR 4 CYCLES

REACTIONS (1)
  - Off label use [Unknown]
